FAERS Safety Report 7249234-1 (Version None)
Quarter: 2011Q1

REPORT INFORMATION
  Report Type: 
  Country: None (occurrence: None)
  Receive Date: 20110128
  Receipt Date: 20101207
  Transmission Date: 20110831
  Serious: Yes (Hospitalization, Other)
  Sender: FDA-Public Use
  Company Number: US-BAYER-2010-008469

PATIENT
  Sex: Female
  Weight: 63 kg

DRUGS (2)
  1. ORTHO TRI-CYCLEN [Concomitant]
     Indication: CONTRACEPTION
     Dosage: 1 DF, QD
     Dates: start: 20070701, end: 20070801
  2. YASMIN [Suspect]
     Indication: PRODUCT USED FOR UNKNOWN INDICATION
     Dosage: UNK
     Dates: start: 20061001, end: 20070614

REACTIONS (9)
  - NEPHROLITHIASIS [None]
  - PYELONEPHRITIS [None]
  - NAUSEA [None]
  - BILIARY DYSKINESIA [None]
  - URINARY TRACT INFECTION [None]
  - ABDOMINAL PAIN UPPER [None]
  - VOMITING [None]
  - MENORRHAGIA [None]
  - DYSURIA [None]
